FAERS Safety Report 6537716-7 (Version None)
Quarter: 2009Q4

REPORT INFORMATION
  Report Type: 
  Country: None (occurrence: None)
  Receive Date: 20091229
  Receipt Date: 20091016
  Transmission Date: 20100525
  Serious: No
  Sender: FDA-Public Use
  Company Number: 1000009504

PATIENT
  Age: 87 Year
  Sex: Female

DRUGS (5)
  1. BYSTOLIC [Suspect]
     Indication: HYPERTENSION
     Dosage: 5 MG (5 MG,1 IN 1 D),ORAL
     Route: 048
     Dates: start: 20090925
  2. AMLODIPINE [Concomitant]
  3. TRIMETHOPRIM [Concomitant]
  4. MULTI-VITAMIN [Concomitant]
  5. VITAMIN B6 [Concomitant]

REACTIONS (3)
  - CHROMATURIA [None]
  - FAECES DISCOLOURED [None]
  - URINARY TRACT INFECTION [None]
